FAERS Safety Report 5668026-8 (Version None)
Quarter: 2008Q1

REPORT INFORMATION
  Report Type: 
  Country: None (occurrence: None)
  Receive Date: 20080315
  Receipt Date: 20080213
  Transmission Date: 20080703
  Serious: No
  Sender: FDA-Public Use
  Company Number: US-ABBOTT-08P-163-0438335-00

PATIENT
  Sex: Male

DRUGS (1)
  1. HUMIRA [Suspect]
     Indication: PALINDROMIC RHEUMATISM
     Route: 058
     Dates: start: 20070901

REACTIONS (2)
  - DIZZINESS [None]
  - FATIGUE [None]
